FAERS Safety Report 6919515-7 (Version None)
Quarter: 2010Q3

REPORT INFORMATION
  Report Type: 
  Country: None (occurrence: None)
  Receive Date: 20100811
  Receipt Date: 20100802
  Transmission Date: 20110219
  Serious: Yes (Other)
  Sender: FDA-Public Use
  Company Number: US-CELGENEUS-163-20785-10080261

PATIENT
  Sex: Female

DRUGS (17)
  1. THALOMID [Suspect]
     Indication: MULTIPLE MYELOMA
     Dosage: 150-50MG
     Route: 048
     Dates: start: 20010901, end: 20030101
  2. THALOMID [Suspect]
     Route: 048
     Dates: start: 20031101
  3. THALOMID [Suspect]
     Route: 048
     Dates: start: 20100228, end: 20100429
  4. ADVAIR DISKUS 100/50 [Concomitant]
     Route: 065
     Dates: start: 20100101
  5. ADVAIR DISKUS 100/50 [Concomitant]
     Indication: ASTHMA
  6. PAXIL [Concomitant]
     Indication: DEPRESSION
     Route: 065
  7. NEURONTIN [Concomitant]
     Route: 065
  8. LEVOXYL [Concomitant]
     Indication: THYROIDITIS
     Route: 065
     Dates: start: 20080101
  9. FOLIC ACID [Concomitant]
     Route: 065
  10. SPIRIVA [Concomitant]
     Route: 065
     Dates: start: 20100101
  11. SPIRIVA [Concomitant]
     Indication: ASTHMA
  12. AMBIEN [Concomitant]
     Indication: INSOMNIA
     Route: 065
  13. VICODIN [Concomitant]
     Route: 065
  14. PREVACID [Concomitant]
     Route: 065
  15. PREVACID [Concomitant]
     Indication: GASTRITIS
  16. NEXIUM [Concomitant]
     Route: 065
  17. NEXIUM [Concomitant]
     Indication: GASTRITIS

REACTIONS (3)
  - ANAEMIA [None]
  - ASTHMA [None]
  - CHRONIC OBSTRUCTIVE PULMONARY DISEASE [None]
